FAERS Safety Report 10186191 (Version 1)
Quarter: 2014Q2

REPORT INFORMATION
  Report Type: Spontaneous
  Country: FR (occurrence: FR)
  Receive Date: 20140521
  Receipt Date: 20140521
  Transmission Date: 20141212
  Serious: Yes (Hospitalization, Other)
  Sender: FDA-Public Use
  Company Number: FR-B.I. PHARMACEUTICALS,INC./RIDGEFIELD-2014-BI-21374FF

PATIENT
  Age: 89 Year
  Sex: Male

DRUGS (4)
  1. PRADAXA [Suspect]
     Indication: PRODUCT USED FOR UNKNOWN INDICATION
     Dosage: 220 MG
     Route: 048
     Dates: start: 20140315, end: 20140331
  2. LOVENOX [Suspect]
     Indication: PRODUCT USED FOR UNKNOWN INDICATION
     Dosage: 0.4 ML
     Route: 058
     Dates: start: 20140306, end: 20140314
  3. KARDEGIC [Concomitant]
     Dosage: 75 MG
     Route: 048
     Dates: start: 20140306
  4. DISULONE [Concomitant]
     Dosage: 100 MG
     Route: 048
     Dates: start: 20131223

REACTIONS (2)
  - Pulmonary embolism [Not Recovered/Not Resolved]
  - Drug ineffective [Unknown]
